FAERS Safety Report 21327829 (Version 1)
Quarter: 2022Q3

REPORT INFORMATION
  Report Type: Report from Study
  Country: CL (occurrence: CL)
  Receive Date: 20220913
  Receipt Date: 20220913
  Transmission Date: 20221026
  Serious: Yes (Other)
  Sender: FDA-Public Use
  Company Number: CL-MYLANLABS-2022M1093127

PATIENT
  Age: 5 Year
  Weight: 15 kg

DRUGS (1)
  1. VORICONAZOLE [Suspect]
     Active Substance: VORICONAZOLE
     Indication: Aspergillus infection
     Dosage: 16 MILLIGRAM/KILOGRAM, TID (THREE TIMES A DAY) INTRAVENOUS INFUSION
     Route: 042

REACTIONS (1)
  - Visual impairment [Recovered/Resolved]
